FAERS Safety Report 10521559 (Version 1)
Quarter: 2014Q4

REPORT INFORMATION
  Report Type: Spontaneous
  Country: US (occurrence: US)
  Receive Date: 20141016
  Receipt Date: 20141016
  Transmission Date: 20150528
  Serious: Yes (Death)
  Sender: FDA-Public Use
  Company Number: US-ROCHE-1475573

PATIENT
  Age: 49 Year
  Sex: Female

DRUGS (1)
  1. ZELBORAF [Suspect]
     Active Substance: VEMURAFENIB
     Indication: METASTASES TO CENTRAL NERVOUS SYSTEM
     Route: 048
     Dates: start: 20140916

REACTIONS (1)
  - Death [Fatal]

NARRATIVE: CASE EVENT DATE: 20141004
